FAERS Safety Report 18146798 (Version 1)
Quarter: 2020Q3

REPORT INFORMATION
  Report Type: Spontaneous
  Country: IN (occurrence: IN)
  Receive Date: 20200813
  Receipt Date: 20200813
  Transmission Date: 20201103
  Serious: Yes (Other)
  Sender: FDA-Public Use
  Company Number: IN-MEITHEAL PHARMACEUTICALS-2020MHL00053

PATIENT
  Age: 3 Year
  Sex: Female

DRUGS (2)
  1. TOPOTECAN [Suspect]
     Active Substance: TOPOTECAN HYDROCHLORIDE
     Dosage: 1 MG IN 0.1 ML
  2. TOPOTECAN [Suspect]
     Active Substance: TOPOTECAN HYDROCHLORIDE
     Dosage: 20 ?GM IN 0.1 MG

REACTIONS (3)
  - Corneal defect [Recovered/Resolved]
  - Erythema multiforme [Recovered/Resolved]
  - Hypersensitivity [Recovered/Resolved]
